FAERS Safety Report 10266481 (Version 2)
Quarter: 2014Q2

REPORT INFORMATION
  Report Type: Other
  Country: US (occurrence: US)
  Receive Date: 20140629
  Receipt Date: 20140629
  Transmission Date: 20141212
  Serious: Yes (Hospitalization, Other)
  Sender: FDA-Public Use
  Company Number: US-GSKPPD-2014GSK000347

PATIENT
  Age: 57 Year
  Sex: Male

DRUGS (6)
  1. AVANDIA [Suspect]
     Indication: DIABETES MELLITUS
     Route: 048
     Dates: start: 20021202, end: 20090302
  2. ASPIRIN [Concomitant]
     Route: 048
     Dates: start: 20091231
  3. LASIX [Concomitant]
     Route: 048
     Dates: start: 20091231
  4. LIPITOR [Concomitant]
     Route: 048
     Dates: start: 20091230
  5. LISINOPRIL [Concomitant]
     Route: 048
     Dates: start: 20091230
  6. METOPROLOL XL [Concomitant]
     Route: 048
     Dates: start: 20091231

REACTIONS (4)
  - Cardiac failure congestive [None]
  - Dyspnoea exertional [Recovered/Resolved]
  - Aortic valve disease mixed [Recovered/Resolved]
  - Coronary artery stenosis [Recovered/Resolved]
